FAERS Safety Report 8290308-4 (Version None)
Quarter: 2012Q2

REPORT INFORMATION
  Report Type: 
  Country: None (occurrence: None)
  Receive Date: 20120413
  Receipt Date: 20120413
  Transmission Date: 20120825
  Serious: Yes (Hospitalization)
  Sender: FDA-Public Use
  Company Number: None

PATIENT
  Sex: Female
  Weight: 74.9 kg

DRUGS (4)
  1. VINBLASTINE SULFATE [Suspect]
     Dosage: 21.6 MG
  2. BLEOMYCIN SULFATE [Suspect]
  3. DOXORUBICIN HCL [Suspect]
     Dosage: 90 MG
  4. DACARBAZINE [Suspect]
     Dosage: 1350 MG

REACTIONS (7)
  - PULMONARY FIBROSIS [None]
  - ORGANISING PNEUMONIA [None]
  - RESPIRATORY FAILURE [None]
  - PULMONARY TOXICITY [None]
  - PNEUMOTHORAX [None]
  - PNEUMOMEDIASTINUM [None]
  - PULMONARY OEDEMA [None]
